FAERS Safety Report 14544170 (Version 1)
Quarter: 2018Q1

REPORT INFORMATION
  Report Type: Spontaneous
  Country: DE (occurrence: DE)
  Receive Date: 20180216
  Receipt Date: 20180216
  Transmission Date: 20180509
  Serious: Yes (Death, Hospitalization)
  Sender: FDA-Public Use
  Company Number: DE-PURDUE PHARMA-GBR-2018-0053348

PATIENT
  Age: 57 Year
  Sex: Female

DRUGS (3)
  1. TARGIN [Suspect]
     Active Substance: NALOXONE HYDROCHLORIDE\OXYCODONE HYDROCHLORIDE
     Indication: PAIN
     Dosage: 20 MG, FOR THE NIGHT
     Route: 065
  2. TARGIN [Suspect]
     Active Substance: NALOXONE HYDROCHLORIDE\OXYCODONE HYDROCHLORIDE
     Dosage: 90 MG, DAILY
     Route: 065
  3. LEVOMETHADONE [Suspect]
     Active Substance: LEVOMETHADONE
     Indication: TUMOUR PAIN
     Dosage: UNK
     Route: 048

REACTIONS (4)
  - Vomiting [Fatal]
  - Unresponsive to stimuli [Fatal]
  - Cyanosis [Fatal]
  - Hypoxia [Fatal]
